FAERS Safety Report 20771723 (Version 8)
Quarter: 2022Q2

REPORT INFORMATION
  Report Type: Spontaneous
  Country: US (occurrence: US)
  Receive Date: 20220430
  Receipt Date: 20220614
  Transmission Date: 20220720
  Serious: Yes (Hospitalization, Other)
  Sender: FDA-Public Use
  Company Number: US-UNITED THERAPEUTICS-UNT-2022-009046

PATIENT
  Age: 68 Year
  Sex: Male
  Weight: 69.388 kg

DRUGS (7)
  1. REMODULIN [Suspect]
     Active Substance: TREPROSTINIL
     Indication: Pulmonary arterial hypertension
     Dosage: UNK UNK, CONTINUING
     Route: 041
     Dates: start: 20220418
  2. REMODULIN [Suspect]
     Active Substance: TREPROSTINIL
     Dosage: UNK UNK, CONTINUING
     Route: 041
     Dates: start: 202204
  3. REMODULIN [Suspect]
     Active Substance: TREPROSTINIL
     Indication: Pulmonary arterial hypertension
     Dosage: UNK UNK, CONTINUING
     Route: 041
     Dates: start: 202204
  4. REMODULIN [Suspect]
     Active Substance: TREPROSTINIL
     Dosage: 0.024 ?G/KG, CONTINUING
     Route: 041
     Dates: start: 202204
  5. STERILE DILUENT FOR REMODULIN [Suspect]
     Active Substance: WATER
     Indication: Pulmonary arterial hypertension
     Dosage: UNK
     Route: 041
  6. HEPARIN [Suspect]
     Active Substance: HEPARIN SODIUM
     Indication: Product used for unknown indication
     Dosage: UNK
     Route: 065
  7. TADALAFIL [Concomitant]
     Active Substance: TADALAFIL
     Indication: Product used for unknown indication
     Dosage: UNK
     Route: 065

REACTIONS (16)
  - Dry mouth [Unknown]
  - Headache [Not Recovered/Not Resolved]
  - Pain in jaw [Not Recovered/Not Resolved]
  - Hypoxia [Unknown]
  - Diarrhoea [Not Recovered/Not Resolved]
  - Dyspepsia [Unknown]
  - Tachycardia [Unknown]
  - Pruritus [Unknown]
  - Dyspnoea [Not Recovered/Not Resolved]
  - Dizziness postural [Recovered/Resolved]
  - Dermatitis contact [Unknown]
  - Device physical property issue [Unknown]
  - Seasonal allergy [Unknown]
  - Flushing [Unknown]
  - Sensory disturbance [Recovered/Resolved]
  - Dyspnoea exertional [Unknown]

NARRATIVE: CASE EVENT DATE: 20220401
